FAERS Safety Report 9314668 (Version 2)
Quarter: 2013Q2

REPORT INFORMATION
  Report Type: Spontaneous
  Country: JP (occurrence: JP)
  Receive Date: 20130529
  Receipt Date: 20130603
  Transmission Date: 20140414
  Serious: Yes (Other)
  Sender: FDA-Public Use
  Company Number: JP-BRISTOL-MYERS SQUIBB COMPANY-18921304

PATIENT
  Age: 60 Year
  Sex: Male

DRUGS (3)
  1. HYDREA [Suspect]
     Route: 048
     Dates: start: 20130511, end: 20130521
  2. TAKEPRON [Suspect]
     Dosage: ONG
     Route: 048
     Dates: start: 20130511
  3. CALONAL [Suspect]
     Route: 048
     Dates: start: 20130502

REACTIONS (1)
  - Interstitial lung disease [Not Recovered/Not Resolved]
